FAERS Safety Report 5157202-9 (Version None)
Quarter: 2006Q4

REPORT INFORMATION
  Report Type: 
  Country: None (occurrence: None)
  Receive Date: 20061127
  Receipt Date: 20061115
  Transmission Date: 20070319
  Serious: Yes (Hospitalization)
  Sender: FDA-Public Use
  Company Number: PHFR2006GB03394

PATIENT
  Age: 48 Year
  Sex: Male

DRUGS (2)
  1. CLOZARIL [Suspect]
     Indication: SCHIZOPHRENIA
     Route: 048
     Dates: start: 20061024, end: 20061110
  2. FLUOXETINE [Concomitant]
     Route: 065

REACTIONS (4)
  - INFLAMMATION [None]
  - PYREXIA [None]
  - RASH [None]
  - VASCULITIS [None]
